FAERS Safety Report 17123734 (Version 2)
Quarter: 2019Q4

REPORT INFORMATION
  Report Type: Report from Study
  Country: AT (occurrence: AT)
  Receive Date: 20191206
  Receipt Date: 20191218
  Transmission Date: 20200122
  Serious: Yes (Death)
  Sender: FDA-Public Use
  Company Number: AT-MYLANLABS-2019M1120212

PATIENT
  Age: 62 Year
  Sex: Female
  Weight: 130.8 kg

DRUGS (15)
  1. EMEND [Concomitant]
     Active Substance: APREPITANT
     Dosage: ONGOING = CHECKED
     Route: 065
     Dates: start: 20190306
  2. FORTECORTIN                        /00016001/ [Concomitant]
     Active Substance: DEXAMETHASONE
     Dosage: ONGOING = CHECKED
     Route: 065
     Dates: start: 20190306
  3. ZOFRAN [Concomitant]
     Active Substance: ONDANSETRON HYDROCHLORIDE
     Dosage: ONGOING = CHECKED
     Route: 065
     Dates: start: 20190306
  4. TAXOTERE [Suspect]
     Active Substance: DOCETAXEL
     Indication: BREAST CANCER
     Dosage: 127 MILLIGRAM, Q3W
     Route: 042
     Dates: start: 20190306, end: 20190528
  5. FORTECORTIN                        /00016001/ [Concomitant]
     Active Substance: DEXAMETHASONE
     Dosage: ONGOING = CHECKED
     Route: 065
     Dates: start: 20190306
  6. PANTOLOC                           /01263201/ [Concomitant]
     Active Substance: PANTOPRAZOLE SODIUM
     Dosage: ONGOING = CHECKED
     Route: 065
     Dates: start: 20190306
  7. ENALAPRIL/HCT [Concomitant]
     Dosage: ONGOING = CHECKED
     Route: 065
  8. TRASTUZUMAB. [Suspect]
     Active Substance: TRASTUZUMAB
     Indication: BREAST CANCER
     Dosage: 1040 MILLIGRAM, Q3W
     Route: 042
     Dates: start: 20190306, end: 20190619
  9. ZOFRAN [Concomitant]
     Active Substance: ONDANSETRON HYDROCHLORIDE
     Dosage: ONGOING = CHECKED
     Route: 065
     Dates: start: 20190306
  10. DAFLON                             /01026201/ [Concomitant]
     Active Substance: DIOSMIN\HESPERIDIN
     Dosage: ONGOING = CHECKED
     Route: 065
  11. FORLAX [Concomitant]
     Active Substance: POLYETHYLENE GLYCOL 4000
     Dosage: ONGOING = CHECKED
     Route: 065
     Dates: start: 20190306
  12. MEXALEN [Concomitant]
     Active Substance: ACETAMINOPHEN
     Dosage: ONGOING = CHECKED
     Route: 065
     Dates: start: 20190306
  13. DIBONDRIN [Concomitant]
     Active Substance: DIPHENHYDRAMINE HYDROCHLORIDE
     Dosage: ONGOING = CHECKED
     Route: 065
     Dates: start: 20190306
  14. PERTUZUMAB. [Suspect]
     Active Substance: PERTUZUMAB
     Indication: BREAST CANCER
     Dosage: 840 MILLIGRAM, Q3W
     Route: 042
     Dates: start: 20190306, end: 20190619
  15. ZOFRAN [Concomitant]
     Active Substance: ONDANSETRON HYDROCHLORIDE
     Dosage: ONGOING = CHECKED
     Route: 065
     Dates: start: 20190306

REACTIONS (2)
  - Pneumonia [Fatal]
  - Vascular device infection [Fatal]

NARRATIVE: CASE EVENT DATE: 20190628
